FAERS Safety Report 8225265-X (Version None)
Quarter: 2012Q1

REPORT INFORMATION
  Report Type: 
  Country: None (occurrence: None)
  Receive Date: 20120307
  Receipt Date: 20110124
  Transmission Date: 20120608
  Serious: No
  Sender: FDA-Public Use
  Company Number: PHHY2011US02817

PATIENT
  Age: 12 Year
  Sex: Male

DRUGS (4)
  1. AFINITOR [Suspect]
     Indication: ASTROCYTOMA
     Dosage: 2.5 MG, DAILY, ORAL
     Route: 048
     Dates: start: 20110103
  2. AFINITOR [Suspect]
     Indication: CEREBRAL HAEMORRHAGE
     Dosage: 2.5 MG, DAILY, ORAL
     Route: 048
     Dates: start: 20110103
  3. ARNIKA (ARNICA MONTANA TINCTURE) [Concomitant]
  4. DEPAKOTE (VALPROATE SEMISODIUM), 1500 MG [Concomitant]

REACTIONS (2)
  - COUGH [None]
  - INFLAMMATION [None]
